FAERS Safety Report 9971534 (Version 1)
Quarter: 2014Q1

REPORT INFORMATION
  Report Type: Report from Study
  Country: US (occurrence: US)
  Receive Date: 20140306
  Receipt Date: 20140306
  Transmission Date: 20141002
  Serious: No
  Sender: FDA-Public Use
  Company Number: US-ABBVIE-13P-163-1151944-00

PATIENT
  Age: 59 Year
  Sex: Female

DRUGS (6)
  1. HUMIRA [Suspect]
     Indication: CROHN^S DISEASE
     Dosage: DAY 1
     Dates: start: 20130813
  2. HUMIRA [Suspect]
     Dosage: DAY 15
  3. HUMIRA [Suspect]
  4. LIALDA [Concomitant]
     Indication: CROHN^S DISEASE
     Dosage: 1.2 GM 4 TABS DAILY
     Route: 048
  5. ISONIAZID [Concomitant]
     Indication: LATENT TUBERCULOSIS
     Dosage: 300 MG DAILY
  6. UCERIS [Concomitant]
     Indication: CROHN^S DISEASE
     Dosage: 9 MG DAILY
     Route: 048

REACTIONS (1)
  - Diarrhoea [Not Recovered/Not Resolved]
